FAERS Safety Report 10217943 (Version 1)
Quarter: 2014Q2

REPORT INFORMATION
  Report Type: Spontaneous
  Country: US (occurrence: US)
  Receive Date: 20140605
  Receipt Date: 20140605
  Transmission Date: 20141212
  Serious: No
  Sender: FDA-Public Use
  Company Number: US-BIOGENIDEC-2014BI048917

PATIENT
  Age: 47 Year
  Sex: Female

DRUGS (6)
  1. AVONEX [Suspect]
     Indication: MULTIPLE SCLEROSIS
     Route: 030
     Dates: start: 20021205
  2. AVONEX [Suspect]
     Indication: MULTIPLE SCLEROSIS
     Route: 030
     Dates: start: 20030215
  3. AVONEX [Suspect]
     Indication: MULTIPLE SCLEROSIS
     Route: 030
     Dates: start: 20140427
  4. AVONEX [Suspect]
     Indication: MULTIPLE SCLEROSIS
     Route: 030
     Dates: start: 20140517
  5. TYSABRI [Concomitant]
     Indication: MULTIPLE SCLEROSIS
     Route: 042
  6. TYSABRI [Concomitant]
     Indication: MULTIPLE SCLEROSIS
     Route: 042
     Dates: start: 20090501, end: 20130920

REACTIONS (5)
  - Muscular weakness [Not Recovered/Not Resolved]
  - Dysarthria [Unknown]
  - Balance disorder [Unknown]
  - Pain in extremity [Unknown]
  - Feeling hot [Unknown]
